FAERS Safety Report 20429672 (Version 1)
Quarter: 2022Q1

REPORT INFORMATION
  Report Type: Spontaneous
  Country: CN (occurrence: None)
  Receive Date: 20220204
  Receipt Date: 20220204
  Transmission Date: 20220423
  Serious: Yes (Other)
  Sender: FDA-Public Use
  Company Number: CN-ROCHE-2980293

PATIENT
  Age: 53 Year
  Sex: Female

DRUGS (10)
  1. TECENTRIQ [Suspect]
     Active Substance: ATEZOLIZUMAB
     Indication: Lung adenocarcinoma
     Dosage: FOR 5 CYCLES
     Route: 065
     Dates: start: 202106
  2. TECENTRIQ [Suspect]
     Active Substance: ATEZOLIZUMAB
     Route: 065
  3. AFATINIB [Concomitant]
     Active Substance: AFATINIB
     Indication: Lung adenocarcinoma
     Route: 048
     Dates: start: 20180919
  4. AFATINIB [Concomitant]
     Active Substance: AFATINIB
     Route: 048
  5. AFATINIB [Concomitant]
     Active Substance: AFATINIB
     Route: 048
     Dates: start: 201908
  6. ZOLEDRONIC ACID [Concomitant]
     Active Substance: ZOLEDRONIC ACID
     Indication: Product used for unknown indication
     Route: 065
  7. BEVACIZUMAB [Concomitant]
     Active Substance: BEVACIZUMAB
     Indication: Lung adenocarcinoma
     Dosage: NON-ROCHE DRUG, FOR 5 CYCLES
     Dates: start: 202106, end: 202111
  8. BEVACIZUMAB [Concomitant]
     Active Substance: BEVACIZUMAB
     Dosage: NON-ROCHE DRUG
     Route: 065
  9. CARBOPLATIN [Concomitant]
     Active Substance: CARBOPLATIN
     Indication: Lung adenocarcinoma
     Dosage: FOR 5 CYCLES
     Route: 065
     Dates: start: 202106, end: 202111
  10. PACLITAXEL [Concomitant]
     Active Substance: PACLITAXEL
     Indication: Lung adenocarcinoma
     Dosage: FOR 5 CYCLES
     Route: 065
     Dates: start: 202106, end: 202111

REACTIONS (1)
  - Myelosuppression [Unknown]
